FAERS Safety Report 9586993 (Version 2)
Quarter: 2013Q4

REPORT INFORMATION
  Report Type: Report from Study
  Country: JP (occurrence: JP)
  Receive Date: 20131003
  Receipt Date: 20131003
  Transmission Date: 20140711
  Serious: Yes (Hospitalization, Other)
  Sender: FDA-Public Use
  Company Number: JP-TAKEDA-TCI2013A05021

PATIENT
  Age: 70 Year
  Sex: Male
  Weight: 58 kg

DRUGS (41)
  1. TAKEPRON OD TABLETS 15 (LANSOPRAZOLE) [Suspect]
     Indication: PROPHYLAXIS AGAINST GASTROINTESTINAL ULCER
     Dosage: 15 MG, QD
     Route: 048
     Dates: start: 20120704, end: 20120918
  2. TAKEPRON OD TABLETS 15 (LANSOPRAZOLE) [Suspect]
     Indication: PROPHYLAXIS AGAINST GASTROINTESTINAL ULCER
  3. LOXOPROFEN [Concomitant]
     Indication: CANCER PAIN
     Route: 048
     Dates: end: 20120820
  4. LOXOPROFEN [Concomitant]
     Route: 048
  5. LOXOPROFEN [Concomitant]
     Route: 048
     Dates: start: 20120821, end: 20120904
  6. LYRICA [Concomitant]
     Indication: CANCER PAIN
     Route: 048
  7. LYRICA [Concomitant]
     Route: 048
     Dates: end: 20120809
  8. MOHRUS L [Concomitant]
     Indication: CANCER PAIN
     Route: 062
  9. MOHRUS L [Concomitant]
     Route: 062
     Dates: end: 20120810
  10. SALOBEL [Concomitant]
     Route: 048
  11. SALOBEL [Concomitant]
     Route: 048
     Dates: end: 20120830
  12. HERBESSER R [Concomitant]
     Route: 048
  13. HERBESSER R [Concomitant]
     Route: 048
     Dates: end: 20120918
  14. FERROMIA                           /00023520/ [Concomitant]
     Indication: ANAEMIA
     Route: 048
  15. FERROMIA                           /00023520/ [Concomitant]
     Route: 048
     Dates: end: 20120724
  16. ALLEGRA [Concomitant]
     Indication: RASH
     Route: 048
  17. ALLEGRA [Concomitant]
     Route: 048
     Dates: end: 20120725
  18. MINOPEN [Concomitant]
     Indication: TUMOUR INVASION
     Route: 048
     Dates: start: 20120717
  19. MINOPEN [Concomitant]
     Route: 048
     Dates: start: 20120717, end: 20120722
  20. DETANTOL [Concomitant]
     Route: 047
  21. DETANTOL [Concomitant]
     Route: 047
     Dates: end: 20120918
  22. XALATAN [Concomitant]
     Route: 047
  23. XALATAN [Concomitant]
     Route: 047
     Dates: end: 20120918
  24. TIMOPTOL [Concomitant]
     Route: 047
  25. TIMOPTOL [Concomitant]
     Route: 047
     Dates: end: 20120918
  26. HARNAL D [Concomitant]
     Indication: TUMOUR INVASION
     Route: 048
     Dates: start: 20120725
  27. HARNAL D [Concomitant]
     Route: 048
     Dates: start: 20120725, end: 20120918
  28. OXYCONTIN [Concomitant]
     Indication: CANCER PAIN
     Route: 048
     Dates: start: 20120810
  29. OXYCONTIN [Concomitant]
     Route: 048
     Dates: start: 20120810, end: 20120829
  30. OXINORM [Concomitant]
     Indication: CANCER PAIN
     Route: 048
     Dates: start: 20120810
  31. OXINORM [Concomitant]
     Route: 048
     Dates: start: 20120810, end: 20120829
  32. NOVAMIN [Concomitant]
     Indication: CANCER PAIN
     Route: 048
     Dates: start: 20120810
  33. NOVAMIN [Concomitant]
     Route: 048
     Dates: start: 20120810, end: 20120829
  34. FENTOS [Concomitant]
     Indication: CANCER PAIN
     Route: 062
     Dates: start: 20120830
  35. FENTOS [Concomitant]
     Route: 062
     Dates: start: 20120830, end: 20120918
  36. MUCOSTA [Concomitant]
     Route: 048
     Dates: start: 20120821
  37. MUCOSTA [Concomitant]
     Route: 048
     Dates: start: 20120821, end: 20120904
  38. SOLANAX [Concomitant]
     Route: 048
     Dates: start: 20120907
  39. SOLANAX [Concomitant]
     Route: 048
     Dates: start: 20120907, end: 20120918
  40. MAGLAX [Concomitant]
     Route: 048
  41. MAGLAX [Concomitant]
     Route: 048
     Dates: end: 20120829

REACTIONS (6)
  - Bladder tamponade [Recovered/Resolved]
  - Melaena [Recovering/Resolving]
  - Malaise [Recovering/Resolving]
  - Parotitis [Recovering/Resolving]
  - Colon cancer [Not Recovered/Not Resolved]
  - Condition aggravated [Not Recovered/Not Resolved]
